FAERS Safety Report 18227801 (Version 1)
Quarter: 2020Q3

REPORT INFORMATION
  Report Type: Spontaneous
  Country: FR (occurrence: FR)
  Receive Date: 20200903
  Receipt Date: 20200903
  Transmission Date: 20201103
  Serious: Yes (Hospitalization)
  Sender: FDA-Public Use
  Company Number: FR-TEVA-2020-FR-1822267

PATIENT
  Age: 43 Year
  Sex: Female
  Weight: 69 kg

DRUGS (5)
  1. SOLU?MEDROL [Suspect]
     Active Substance: METHYLPREDNISOLONE SODIUM SUCCINATE
     Dosage: 69 MG
     Route: 042
     Dates: start: 20180419, end: 20180422
  2. BICNU [Suspect]
     Active Substance: CARMUSTINE
     Dosage: 540 MG
     Route: 041
     Dates: start: 20180419, end: 20180419
  3. ALKERAN [Suspect]
     Active Substance: MELPHALAN
     Dosage: 260 MG
     Route: 041
     Dates: start: 20180423, end: 20180423
  4. CYTARABINE SANDOZ [Suspect]
     Active Substance: CYTARABINE
     Dosage: 720 MG
     Route: 041
     Dates: start: 20180419, end: 20180422
  5. ETOPOSIDE TEVA [Suspect]
     Active Substance: ETOPOSIDE
     Dosage: 360 MG
     Route: 041
     Dates: start: 20180419, end: 20180422

REACTIONS (3)
  - Mucosal inflammation [Recovered/Resolved]
  - Bacterial infection [Recovered/Resolved]
  - Aplasia [Recovered/Resolved]

NARRATIVE: CASE EVENT DATE: 20180423
